FAERS Safety Report 20487268 (Version 1)
Quarter: 2022Q1

REPORT INFORMATION
  Report Type: Spontaneous
  Country: DE (occurrence: DE)
  Receive Date: 20220217
  Receipt Date: 20220217
  Transmission Date: 20220423
  Serious: Yes (Other)
  Sender: FDA-Public Use
  Company Number: DE-JNJFOC-20220222040

PATIENT
  Age: 49 Year
  Sex: Male

DRUGS (1)
  1. CONCERTA [Suspect]
     Active Substance: METHYLPHENIDATE HYDROCHLORIDE
     Indication: Product used for unknown indication
     Route: 065

REACTIONS (6)
  - Drug abuse [Unknown]
  - Substance-induced psychotic disorder [Recovered/Resolved]
  - Delusion [Recovered/Resolved]
  - Mental disorder [Recovered/Resolved]
  - Anxiety [Recovered/Resolved]
  - Medication error [Unknown]
